FAERS Safety Report 8216116 (Version 2)
Quarter: 2013Q1

REPORT INFORMATION
  Report Type: Spontaneous
  Country: US (occurrence: US)
  Receive Date: 20111031
  Receipt Date: 20130208
  Transmission Date: 20140127
  Serious: Yes (Other)
  Sender: FDA-Public Use
  Company Number: US-ROCHE-1007975

PATIENT
  Sex: Male
  Weight: 63.56 kg

DRUGS (3)
  1. ACCUTANE [Suspect]
     Indication: ACNE
     Route: 065
     Dates: start: 198911, end: 199002
  2. ACCUTANE [Suspect]
     Route: 065
     Dates: start: 199012, end: 19910108
  3. COLAZAL [Concomitant]
     Indication: COLITIS ULCERATIVE
     Route: 065

REACTIONS (4)
  - Injury [Unknown]
  - Inflammatory bowel disease [Unknown]
  - Colitis ulcerative [Unknown]
  - Depression [Unknown]
